FAERS Safety Report 17638848 (Version 1)
Quarter: 2020Q2

REPORT INFORMATION
  Report Type: Spontaneous
  Country: US (occurrence: US)
  Receive Date: 20200407
  Receipt Date: 20200407
  Transmission Date: 20200713
  Serious: No
  Sender: FDA-Public Use
  Company Number: US-SA-2020SA085368

PATIENT
  Age: 52 Year
  Sex: Male

DRUGS (1)
  1. ADMELOG [Suspect]
     Active Substance: INSULIN LISPRO
     Dosage: 30 IU, QD

REACTIONS (4)
  - Product dose omission [Unknown]
  - Device operational issue [Unknown]
  - Blood glucose increased [Unknown]
  - Blood glucose decreased [Unknown]
